FAERS Safety Report 12961051 (Version 6)
Quarter: 2017Q3

REPORT INFORMATION
  Report Type: Report from Study
  Country: US (occurrence: US)
  Receive Date: 20161121
  Receipt Date: 20170807
  Transmission Date: 20171127
  Serious: Yes (Life-Threatening, Hospitalization)
  Sender: FDA-Public Use
  Company Number: US-TEVA-713983ACC

PATIENT
  Age: 69 Year
  Sex: Male

DRUGS (11)
  1. CLOBETASOL PROPIONATE. [Concomitant]
     Active Substance: CLOBETASOL PROPIONATE
     Indication: HYPERSENSITIVITY
     Dosage: 1.0 (UNSPECIFIED)
     Route: 061
     Dates: start: 20160414
  2. LORATADINE. [Concomitant]
     Active Substance: LORATADINE
     Indication: HYPERSENSITIVITY
     Dosage: 1 IN 1
     Route: 048
     Dates: start: 2013
  3. TRIAMCINOLONE [Concomitant]
     Active Substance: TRIAMCINOLONE
     Indication: HYPERSENSITIVITY
     Dosage: 2 GRAM DAILY;
     Route: 061
     Dates: start: 2013
  4. RITUXAN [Suspect]
     Active Substance: RITUXIMAB
     Indication: CHRONIC LYMPHOCYTIC LEUKAEMIA
     Dosage: (DAY 1 AND DAY 2 SPLIT DOSE)
     Route: 048
     Dates: start: 20160927
  5. RITUXAN [Suspect]
     Active Substance: RITUXIMAB
     Dosage: (DAY 1 OF EVERY 28 DAYS)
     Route: 042
     Dates: start: 20170202, end: 20170228
  6. FLUOROURACIL. [Concomitant]
     Active Substance: FLUOROURACIL
     Indication: ACTINIC KERATOSIS
     Route: 061
     Dates: start: 20160414
  7. BENDAMUSTINE HYDROCHLORIDE. [Suspect]
     Active Substance: BENDAMUSTINE HYDROCHLORIDE
     Dosage: (ON DAY 1 AND DAY 2 OF EVERY 28 DAYS)
     Route: 042
     Dates: start: 20161025, end: 20170301
  8. IBRUTINIB [Suspect]
     Active Substance: IBRUTINIB
     Indication: CHRONIC LYMPHOCYTIC LEUKAEMIA
     Dosage: 420 MILLIGRAM DAILY;
     Route: 048
     Dates: start: 20160704, end: 20160817
  9. RITUXAN [Suspect]
     Active Substance: RITUXIMAB
     Dosage: (DAY 1 OF EVERY 28DAYS)
     Route: 042
     Dates: start: 20161025, end: 20170202
  10. BENDAMUSTINE HYDROCHLORIDE. [Suspect]
     Active Substance: BENDAMUSTINE HYDROCHLORIDE
     Indication: CHRONIC LYMPHOCYTIC LEUKAEMIA
     Dosage: (DAY 1 AND DAY 2)
     Route: 042
     Dates: start: 20160927
  11. IBRUTINIB [Suspect]
     Active Substance: IBRUTINIB
     Dosage: 280 MILLIGRAM DAILY;
     Route: 048
     Dates: start: 20160817, end: 20160831

REACTIONS (6)
  - Tinnitus [Not Recovered/Not Resolved]
  - Aspartate aminotransferase increased [Recovered/Resolved]
  - Fatigue [Not Recovered/Not Resolved]
  - Vomiting [Recovered/Resolved]
  - Alanine aminotransferase increased [Recovered/Resolved]
  - Decreased appetite [Not Recovered/Not Resolved]

NARRATIVE: CASE EVENT DATE: 20160706
